FAERS Safety Report 26153053 (Version 1)
Quarter: 2025Q4

REPORT INFORMATION
  Report Type: Spontaneous
  Country: US (occurrence: US)
  Receive Date: 20251214
  Receipt Date: 20251214
  Transmission Date: 20260118
  Serious: No
  Sender: GLAXOSMITHKLINE
  Company Number: US-GSK-US2025AMR158633

PATIENT
  Sex: Male

DRUGS (2)
  1. ADVAIR DISKUS [Suspect]
     Active Substance: FLUTICASONE PROPIONATE\SALMETEROL XINAFOATE
     Indication: Product used for unknown indication
     Dosage: 250/50 MCG, 60
  2. LACTASE [Concomitant]
     Active Substance: LACTASE
     Indication: Eructation
     Dosage: UNK

REACTIONS (2)
  - Fatigue [Unknown]
  - Insomnia [Unknown]
